FAERS Safety Report 7350513-8 (Version None)
Quarter: 2011Q1

REPORT INFORMATION
  Report Type: 
  Country: None (occurrence: None)
  Receive Date: 20110309
  Receipt Date: 20110309
  Transmission Date: 20110831
  Serious: Yes (Other)
  Sender: FDA-Public Use
  Company Number: None

PATIENT
  Age: 21 Year
  Sex: Female
  Weight: 70.7611 kg

DRUGS (2)
  1. METHYLIN [Suspect]
     Indication: ATTENTION DEFICIT/HYPERACTIVITY DISORDER
     Dosage: 1, 5MG TABLET BY MOUTH 2X'S DAILY PO
     Route: 048
     Dates: start: 20110223, end: 20110307
  2. BUPROPION HYDROCHLORIDE [Concomitant]

REACTIONS (5)
  - NAUSEA [None]
  - NIGHTMARE [None]
  - HALLUCINATION [None]
  - DIZZINESS [None]
  - FATIGUE [None]
